FAERS Safety Report 17509490 (Version 1)
Quarter: 2020Q1

REPORT INFORMATION
  Report Type: Spontaneous
  Country: US (occurrence: US)
  Receive Date: 20200306
  Receipt Date: 20200306
  Transmission Date: 20200409
  Serious: Yes (Hospitalization)
  Sender: FDA-Public Use
  Company Number: None

PATIENT
  Sex: Male

DRUGS (7)
  1. MULTIVITAMIN [Concomitant]
     Active Substance: VITAMINS
     Dates: start: 20190507
  2. VITAMIN B12 [Concomitant]
     Active Substance: CYANOCOBALAMIN
     Dates: start: 20190507
  3. VITAMIN D3 [Concomitant]
     Active Substance: CHOLECALCIFEROL
     Dates: start: 20190507
  4. ASPIRIN. [Concomitant]
     Active Substance: ASPIRIN
     Dates: start: 20190507
  5. MELATONIN [Concomitant]
     Active Substance: MELATONIN
     Dates: start: 20190507
  6. HUMIRA [Suspect]
     Active Substance: ADALIMUMAB
     Indication: ARTHRITIS
     Dosage: ?          OTHER FREQUENCY:EVERY OTHER WEEK;?
     Route: 058
     Dates: start: 20190314
  7. MESALAMIN [Concomitant]
     Dates: start: 20200305

REACTIONS (5)
  - Myocardial infarction [None]
  - Full blood count decreased [None]
  - Atrial fibrillation [None]
  - Therapy cessation [None]
  - Gastric ulcer [None]
